FAERS Safety Report 10157036 (Version 1)
Quarter: 2014Q2

REPORT INFORMATION
  Report Type: Spontaneous
  Country: US (occurrence: US)
  Receive Date: 20140507
  Receipt Date: 20140507
  Transmission Date: 20141212
  Serious: No
  Sender: FDA-Public Use
  Company Number: US-PFIZER INC-2014123872

PATIENT
  Age: 73 Year
  Sex: Female

DRUGS (3)
  1. XELJANZ [Suspect]
     Indication: RHEUMATOID ARTHRITIS
     Dosage: 5 MG, 2X/DAY
     Dates: start: 201308
  2. PREDNISONE [Suspect]
     Dosage: 10 MG
     Dates: end: 201404
  3. PREDNISONE [Suspect]
     Dosage: 7 MG
     Dates: start: 201404

REACTIONS (2)
  - Joint swelling [Unknown]
  - Local swelling [Unknown]
